FAERS Safety Report 6131696-4 (Version None)
Quarter: 2009Q1

REPORT INFORMATION
  Report Type: 
  Country: None (occurrence: None)
  Receive Date: 20090325
  Receipt Date: 20090312
  Transmission Date: 20090719
  Serious: Yes (Death, Other)
  Sender: FDA-Public Use
  Company Number: CA-PURDUE-CAN_2008_0000809

PATIENT
  Age: 36 Year
  Sex: Male

DRUGS (3)
  1. HYDROMORPHONE HCL [Suspect]
     Indication: DRUG USE FOR UNKNOWN INDICATION
  2. OXYCONTIN [Suspect]
     Indication: PAIN IN EXTREMITY
     Route: 048
  3. ALCOHOL                            /00002101/ [Suspect]
     Indication: DRUG USE FOR UNKNOWN INDICATION
     Route: 048

REACTIONS (3)
  - DRUG DEPENDENCE [None]
  - POISONING [None]
  - SUBSTANCE ABUSE [None]
